FAERS Safety Report 12179809 (Version 4)
Quarter: 2016Q3

REPORT INFORMATION
  Report Type: Report from Study
  Country: US (occurrence: US)
  Receive Date: 20160314
  Receipt Date: 20160912
  Transmission Date: 20161109
  Serious: Yes (Death)
  Sender: FDA-Public Use
  Company Number: US-B.I. PHARMACEUTICALS,INC./RIDGEFIELD-2016-BI-03445BI

PATIENT
  Age: 49 Year
  Sex: Male

DRUGS (5)
  1. ATROVENT [Concomitant]
     Active Substance: IPRATROPIUM BROMIDE
     Indication: CHRONIC OBSTRUCTIVE PULMONARY DISEASE
     Dosage: 17 MCG
     Route: 055
     Dates: start: 201410, end: 20151219
  2. TIOTROPIUM BROMIDE [Suspect]
     Active Substance: TIOTROPIUM BROMIDE
     Indication: CHRONIC OBSTRUCTIVE PULMONARY DISEASE
     Route: 055
     Dates: start: 20150526
  3. ALBUTEROL. [Concomitant]
     Active Substance: ALBUTEROL
     Dosage: FORMULATION:NEBULIZER, STRENGHT:0.083%
     Route: 055
     Dates: start: 201410, end: 20151219
  4. TIOTROPIUM BROMIDE [Suspect]
     Active Substance: TIOTROPIUM BROMIDE
     Indication: CHRONIC OBSTRUCTIVE PULMONARY DISEASE
     Route: 055
     Dates: start: 20150526
  5. ALBUTEROL. [Concomitant]
     Active Substance: ALBUTEROL
     Indication: CHRONIC OBSTRUCTIVE PULMONARY DISEASE
     Dosage: 90 MCG
     Route: 055
     Dates: start: 20150519, end: 20151219

REACTIONS (2)
  - Arteriosclerosis [Fatal]
  - Hypertensive heart disease [Fatal]

NARRATIVE: CASE EVENT DATE: 20151219
